FAERS Safety Report 13654981 (Version 1)
Quarter: 2017Q2

REPORT INFORMATION
  Report Type: Spontaneous
  Country: US (occurrence: US)
  Receive Date: 20170614
  Receipt Date: 20170614
  Transmission Date: 20170830
  Serious: Yes (Other)
  Sender: FDA-Public Use
  Company Number: None

PATIENT
  Age: 62 Year
  Sex: Female

DRUGS (8)
  1. LOSARTAN. [Concomitant]
     Active Substance: LOSARTAN
  2. CLONIDINE. [Concomitant]
     Active Substance: CLONIDINE
  3. AMLODIPINE [Concomitant]
     Active Substance: AMLODIPINE BESYLATE
  4. ENSURE [Concomitant]
     Active Substance: AMINO ACIDS\DEXTROSE\ELECTROLYTES NOS\SOYBEAN OIL\VITAMINS
  5. TYLENOL [Concomitant]
     Active Substance: ACETAMINOPHEN
  6. LONSURF [Suspect]
     Active Substance: TIPIRACIL HYDROCHLORIDE\TRIFLURIDINE
     Indication: RECTAL CANCER
     Route: 048
     Dates: start: 20170124
  7. ZANTAC [Concomitant]
     Active Substance: RANITIDINE HYDROCHLORIDE
  8. VITAMIN C [Concomitant]
     Active Substance: ASCORBIC ACID

REACTIONS (7)
  - Asthenia [None]
  - Platelet count decreased [None]
  - Fatigue [None]
  - Red blood cell count decreased [None]
  - Haemorrhage [None]
  - White blood cell count decreased [None]
  - Nausea [None]
